FAERS Safety Report 9202544 (Version 2)
Quarter: 2013Q2

REPORT INFORMATION
  Report Type: Spontaneous
  Country: SI (occurrence: SI)
  Receive Date: 20130401
  Receipt Date: 20130423
  Transmission Date: 20140414
  Serious: Yes (Life-Threatening, Hospitalization, Other)
  Sender: FDA-Public Use
  Company Number: SI-AMGEN-SVNSP2013018074

PATIENT
  Age: 67 Year
  Sex: Female
  Weight: 52.6 kg

DRUGS (5)
  1. PROLIA [Suspect]
     Indication: OSTEOPOROSIS
     Dosage: 60 MG, UNK
     Route: 058
     Dates: start: 20130213, end: 20130213
  2. CORDIPIN [Concomitant]
     Indication: HYPERTENSION
     Dosage: 20 MG, UNK
     Route: 048
  3. TERTENSIF [Concomitant]
     Indication: HYPERTENSION
     Dosage: UNK, UNK
     Route: 048
     Dates: start: 2006
  4. PLIVIT D3 [Concomitant]
     Indication: OSTEOPOROSIS
     Route: 048
  5. CALCIUM CARBONATE [Concomitant]
     Indication: OSTEOPOROSIS
     Dosage: 1 G, UNK

REACTIONS (13)
  - Tetany [Recovered/Resolved]
  - Muscle twitching [Recovered/Resolved]
  - Hypoaesthesia [Recovered/Resolved]
  - Paraesthesia [Recovered/Resolved]
  - Muscle spasms [Recovered/Resolved]
  - Vitamin D decreased [Unknown]
  - Blood parathyroid hormone increased [Unknown]
  - Blood alkaline phosphatase decreased [Unknown]
  - Immobile [Unknown]
  - Hypophosphataemia [Unknown]
  - Hypomagnesaemia [Unknown]
  - Electrocardiogram QT prolonged [Recovered/Resolved]
  - Hypocalcaemia [Recovered/Resolved]
